FAERS Safety Report 22170984 (Version 1)
Quarter: 2023Q2

REPORT INFORMATION
  Report Type: Report from Study
  Country: IT (occurrence: IT)
  Receive Date: 20230404
  Receipt Date: 20230404
  Transmission Date: 20230721
  Serious: Yes (Other)
  Sender: FDA-Public Use
  Company Number: None

PATIENT
  Age: 65 Year
  Sex: Female

DRUGS (6)
  1. PACLITAXEL [Suspect]
     Active Substance: PACLITAXEL
     Indication: Product used for unknown indication
     Dosage: ROUTE OF ADMINISTRATION: PARENTERAL
     Dates: start: 20221026
  2. APREPITANT [Suspect]
     Active Substance: APREPITANT
     Indication: Product used for unknown indication
     Dates: start: 20221026, end: 20221026
  3. AMITRIPTYLINE HYDROCHLORIDE\PERPHENAZINE [Concomitant]
     Active Substance: AMITRIPTYLINE HYDROCHLORIDE\PERPHENAZINE
  4. ZOLOFT [Concomitant]
     Active Substance: SERTRALINE HYDROCHLORIDE
  5. IMOVANE [Concomitant]
     Active Substance: ZOPICLONE
  6. DELORAZEPAM [Concomitant]
     Active Substance: DELORAZEPAM

REACTIONS (3)
  - Oxygen saturation decreased [Recovering/Resolving]
  - Drug hypersensitivity [Recovering/Resolving]
  - Dyspnoea [Recovering/Resolving]

NARRATIVE: CASE EVENT DATE: 20221026
